FAERS Safety Report 11652697 (Version 1)
Quarter: 2015Q4

REPORT INFORMATION
  Report Type: Spontaneous
  Country: US (occurrence: US)
  Receive Date: 20151022
  Receipt Date: 20151022
  Transmission Date: 20160304
  Serious: No
  Sender: FDA-Public Use
  Company Number: US-GLAXOSMITHKLINE-US2015GSK149453

PATIENT
  Age: 36 Year
  Sex: Female

DRUGS (13)
  1. XYREM [Concomitant]
     Active Substance: SODIUM OXYBATE
     Indication: CATAPLEXY
     Dosage: UNK, DOSE ADJUSTMENTS
     Route: 048
  2. XYREM [Concomitant]
     Active Substance: SODIUM OXYBATE
     Dosage: 4.5 G, U (FIRST DOSE)
     Route: 048
     Dates: start: 201202, end: 20151004
  3. XANAX [Concomitant]
     Active Substance: ALPRAZOLAM
  4. LEVOFLOXACIN. [Concomitant]
     Active Substance: LEVOFLOXACIN
  5. XYREM [Concomitant]
     Active Substance: SODIUM OXYBATE
     Dosage: 4.5 G, U (FIRST DOSE)
     Route: 048
     Dates: start: 20151007
  6. ADDERALL [Concomitant]
     Active Substance: AMPHETAMINE ASPARTATE\AMPHETAMINE SULFATE\DEXTROAMPHETAMINE SACCHARATE\DEXTROAMPHETAMINE SULFATE
  7. VICKS NYQUIL [Concomitant]
     Active Substance: ACETAMINOPHEN\DEXTROMETHORPHAN HYDROBROMIDE\DOXYLAMINE SUCCINATE
  8. XYREM [Concomitant]
     Active Substance: SODIUM OXYBATE
     Dosage: 3 G, U (SECOND DOSE)
     Route: 048
     Dates: start: 20151007
  9. XYREM [Concomitant]
     Active Substance: SODIUM OXYBATE
     Indication: NARCOLEPSY
     Dosage: 6 G, QD
     Route: 048
     Dates: start: 201008, end: 2011
  10. XYREM [Concomitant]
     Active Substance: SODIUM OXYBATE
     Dosage: 3 G, U (SECOND DOSE)
     Route: 048
     Dates: start: 201202, end: 20151004
  11. IBUPROFEN. [Concomitant]
     Active Substance: IBUPROFEN
     Indication: MUSCULOSKELETAL PAIN
     Dosage: UNK
  12. DICYCLOMINE [Concomitant]
     Active Substance: DICYCLOMINE HYDROCHLORIDE
  13. WELLBUTRIN [Suspect]
     Active Substance: BUPROPION HYDROCHLORIDE
     Indication: FATIGUE
     Dosage: UNK
     Route: 065
     Dates: start: 20151009

REACTIONS (1)
  - Somnolence [Not Recovered/Not Resolved]

NARRATIVE: CASE EVENT DATE: 201510
